FAERS Safety Report 17901660 (Version 1)
Quarter: 2020Q2

REPORT INFORMATION
  Report Type: Spontaneous
  Country: US (occurrence: US)
  Receive Date: 20200616
  Receipt Date: 20200616
  Transmission Date: 20200714
  Serious: No
  Sender: FDA-Public Use
  Company Number: None

PATIENT
  Age: 42 Year
  Sex: Male
  Weight: 92.25 kg

DRUGS (1)
  1. RHINO PLATINUM 10000 [Suspect]
     Active Substance: DIETARY SUPPLEMENT
     Indication: SEXUAL DYSFUNCTION
     Route: 048
     Dates: start: 20200614, end: 20200614

REACTIONS (4)
  - Gastrooesophageal reflux disease [None]
  - Arthralgia [None]
  - Myalgia [None]
  - Chills [None]

NARRATIVE: CASE EVENT DATE: 20200614
